FAERS Safety Report 20049804 (Version 2)
Quarter: 2021Q4

REPORT INFORMATION
  Report Type: Spontaneous
  Country: BR (occurrence: BR)
  Receive Date: 20211109
  Receipt Date: 20211202
  Transmission Date: 20220303
  Serious: Yes (Other)
  Sender: FDA-Public Use
  Company Number: BR-NOVOPROD-863543

PATIENT
  Age: 74 Year
  Sex: Male
  Weight: 109.5 kg

DRUGS (12)
  1. CLOPIDOGREL [Concomitant]
     Active Substance: CLOPIDOGREL BISULFATE
     Indication: Product used for unknown indication
     Dosage: 75 MG
     Route: 065
  2. ATORVASTATIN [Concomitant]
     Active Substance: ATORVASTATIN
     Indication: Product used for unknown indication
     Dosage: 40 MG
     Route: 065
  3. FUROSEMIDE [Concomitant]
     Active Substance: FUROSEMIDE
     Indication: Product used for unknown indication
     Dosage: 40 MG, BID
     Route: 065
  4. HYDRALAZINE [Concomitant]
     Active Substance: HYDRALAZINE HYDROCHLORIDE
     Indication: Product used for unknown indication
     Dosage: 50 MG (EVERY 8H)
     Route: 065
  5. CARVEDILOL [Concomitant]
     Active Substance: CARVEDILOL
     Indication: Product used for unknown indication
     Dosage: 6.25 MG, BID
     Route: 065
  6. OMEPRAZOLE [Concomitant]
     Active Substance: OMEPRAZOLE
     Indication: Product used for unknown indication
     Dosage: 20MG
     Route: 065
  7. ENTRESTO [Concomitant]
     Active Substance: SACUBITRIL\VALSARTAN
     Indication: Product used for unknown indication
     Dosage: 50 MG, BID
     Route: 065
  8. CLONAZEPAM [Concomitant]
     Active Substance: CLONAZEPAM
     Indication: Product used for unknown indication
  9. ALLOPURINOL [Concomitant]
     Active Substance: ALLOPURINOL
     Dosage: 300 MG
     Route: 065
  10. INSULIN HUMAN [Suspect]
     Active Substance: INSULIN HUMAN
     Dosage: 30 IU, QD(BEFORE BREAKFAST )
     Route: 065
  11. INSULIN HUMAN [Suspect]
     Active Substance: INSULIN HUMAN
     Indication: Type 2 diabetes mellitus
     Dosage: 40 IU, QD(BEFORE BREAKFAST )
     Route: 065
  12. INSULIN HUMAN [Suspect]
     Active Substance: INSULIN HUMAN
     Dosage: 60 IU, QD (20+20 +20 UI)
     Route: 065

REACTIONS (5)
  - Peritoneal dialysis [Unknown]
  - Stasis dermatitis [Unknown]
  - Pedal pulse decreased [Unknown]
  - Hyperglycaemia [Unknown]
  - Hypoglycaemia [Unknown]
